FAERS Safety Report 10015283 (Version 4)
Quarter: 2014Q3

REPORT INFORMATION
  Report Type: Spontaneous
  Country: US (occurrence: US)
  Receive Date: 20140317
  Receipt Date: 20140819
  Transmission Date: 20150326
  Serious: Yes (Hospitalization, Other)
  Sender: FDA-Public Use
  Company Number: US-PFIZER INC-2014071661

PATIENT
  Age: 74 Year
  Sex: Male
  Weight: 113 kg

DRUGS (5)
  1. ASPIRIN. [Concomitant]
     Active Substance: ASPIRIN
     Dosage: 81 MG, UNK
  2. LIPITOR [Concomitant]
     Active Substance: ATORVASTATIN CALCIUM
     Dosage: UNK
  3. CALCIUM [Concomitant]
     Active Substance: CALCIUM
     Dosage: UNK
  4. SUTENT [Suspect]
     Active Substance: SUNITINIB MALATE
     Indication: RENAL CELL CARCINOMA
     Dosage: 50 MG, DAILY (28 DAYS ON AND 14 DAYS OFF)
     Route: 048
     Dates: start: 20140225, end: 20140424
  5. TRIPLE-FLEX [Concomitant]
     Dosage: UNK

REACTIONS (7)
  - Asthenia [Recovering/Resolving]
  - Epistaxis [Recovered/Resolved]
  - Pneumonia [Recovered/Resolved]
  - Dysarthria [Unknown]
  - Dementia [Not Recovered/Not Resolved]
  - Pruritus [Recovered/Resolved]
  - Fatigue [Recovering/Resolving]

NARRATIVE: CASE EVENT DATE: 20140301
